FAERS Safety Report 6446432-1 (Version None)
Quarter: 2009Q4

REPORT INFORMATION
  Report Type: 
  Country: None (occurrence: None)
  Receive Date: 20091119
  Receipt Date: 20091109
  Transmission Date: 20100525
  Serious: Yes (Other)
  Sender: FDA-Public Use
  Company Number: PHHY2009DE34265

PATIENT
  Sex: Male

DRUGS (8)
  1. RASILEZ [Suspect]
     Indication: HYPERTENSION
     Dosage: 150 MG, UNK
     Dates: start: 20090427, end: 20090518
  2. RASILEZ [Suspect]
     Dosage: 1 DF (300 MG), QD
     Dates: start: 20090519
  3. ATACAND [Concomitant]
     Indication: HYPERTENSION
     Dosage: UNK
  4. NEBILET [Concomitant]
     Indication: HYPERTENSION
     Dosage: UNK
  5. OMEP [Concomitant]
     Dosage: UNK
     Dates: end: 20090609
  6. PLAVIX [Concomitant]
  7. PANTOPRAZOLE [Concomitant]
     Dosage: UNK
     Dates: start: 20090609
  8. PANTOPRAZOLE [Concomitant]
     Dosage: DOUBLE DOSAGE

REACTIONS (7)
  - DIARRHOEA [None]
  - FAECES PALE [None]
  - GASTRECTOMY [None]
  - GASTRIC CANCER [None]
  - LACTOSE INTOLERANCE [None]
  - LYMPHADENECTOMY [None]
  - OESOPHAGOGASTROSTOMY [None]
